FAERS Safety Report 18688327 (Version 1)
Quarter: 2020Q4

REPORT INFORMATION
  Report Type: Spontaneous
  Country: US (occurrence: US)
  Receive Date: 20201231
  Receipt Date: 20201231
  Transmission Date: 20210114
  Serious: No
  Sender: FDA-Public Use
  Company Number: US-DRREDDYS-USA/USA/20/0130392

PATIENT
  Age: 68 Year
  Sex: Male
  Weight: 74.25 kg

DRUGS (8)
  1. NICOTINE. [Suspect]
     Active Substance: NICOTINE
     Indication: TOBACCO USER
     Route: 062
     Dates: start: 20201115, end: 20201201
  2. PANTOPRAZOLE SODIUM DR TABLETS 20MG AND  40MG [Concomitant]
     Active Substance: PANTOPRAZOLE SODIUM
     Indication: PRODUCT USED FOR UNKNOWN INDICATION
     Route: 048
  3. TIZANIDINE HYDROCHLORIDE. [Concomitant]
     Active Substance: TIZANIDINE HYDROCHLORIDE
     Indication: PRODUCT USED FOR UNKNOWN INDICATION
  4. PREDNISONE. [Suspect]
     Active Substance: PREDNISONE
     Indication: PRODUCT USED FOR UNKNOWN INDICATION
  5. AMIODARONE HYDROCHLORIDE. [Concomitant]
     Active Substance: AMIODARONE HYDROCHLORIDE
     Indication: PRODUCT USED FOR UNKNOWN INDICATION
  6. LEVOTHYROXINE. [Concomitant]
     Active Substance: LEVOTHYROXINE
     Indication: PRODUCT USED FOR UNKNOWN INDICATION
     Dosage: 2 TABLETS
     Route: 048
  7. NICOTINE. [Suspect]
     Active Substance: NICOTINE
     Route: 062
     Dates: start: 20201115, end: 20201201
  8. TAMSULOSIN [Concomitant]
     Active Substance: TAMSULOSIN
     Indication: PRODUCT USED FOR UNKNOWN INDICATION

REACTIONS (3)
  - Drug ineffective [Unknown]
  - Product quality issue [Unknown]
  - Product adhesion issue [Unknown]
